FAERS Safety Report 9121479 (Version 1)
Quarter: 2013Q1

REPORT INFORMATION
  Report Type: Spontaneous
  Country: US (occurrence: US)
  Receive Date: 20130102
  Receipt Date: 20130102
  Transmission Date: 20140127
  Serious: Yes (Hospitalization, Other)
  Sender: FDA-Public Use
  Company Number: US-RB-047970-12

PATIENT
  Age: 51 Year
  Sex: Male

DRUGS (2)
  1. MUCINEX DM [Suspect]
     Indication: PRODUCT USED FOR UNKNOWN INDICATION
     Dosage: AS PER PRODUCT LABELING
     Route: 048
     Dates: start: 20121218
  2. MUCINEX DM [Suspect]

REACTIONS (3)
  - Dehydration [Unknown]
  - Syncope [Unknown]
  - Road traffic accident [None]
